FAERS Safety Report 19205279 (Version 1)
Quarter: 2021Q2

REPORT INFORMATION
  Report Type: Spontaneous
  Country: US (occurrence: US)
  Receive Date: 20210502
  Receipt Date: 20210502
  Transmission Date: 20210717
  Serious: Yes (Other)
  Sender: FDA-Public Use
  Company Number: None

PATIENT
  Age: 39 Year
  Sex: Female
  Weight: 62.1 kg

DRUGS (1)
  1. CHLORHEXIDINE GLUCONATE. [Suspect]
     Active Substance: CHLORHEXIDINE GLUCONATE
     Indication: ANTIBIOTIC THERAPY
     Dosage: ?          QUANTITY:2 SATURATED Q?TIP;?
     Route: 061
     Dates: start: 20210416, end: 20210416

REACTIONS (5)
  - Nausea [None]
  - Hyperhidrosis [None]
  - Dizziness [None]
  - Loss of consciousness [None]
  - Heart rate increased [None]

NARRATIVE: CASE EVENT DATE: 20210416
